FAERS Safety Report 18442982 (Version 1)
Quarter: 2020Q4

REPORT INFORMATION
  Report Type: Spontaneous
  Country: US (occurrence: US)
  Receive Date: 20201029
  Receipt Date: 20201029
  Transmission Date: 20210114
  Serious: Yes (Other)
  Sender: FDA-Public Use
  Company Number: US-FRESENIUS MEDICAL CARE RENAL THERAPIES GROUP-FMC-2010-001285

PATIENT
  Age: 62 Year
  Sex: Male
  Weight: 141.52 kg

DRUGS (22)
  1. ASPIRIN. [Concomitant]
     Active Substance: ASPIRIN
  2. COREG [Concomitant]
     Active Substance: CARVEDILOL
  3. LASIX [Concomitant]
     Active Substance: FUROSEMIDE
  4. VITAMIN D3 [Concomitant]
     Active Substance: CHOLECALCIFEROL
  5. AMLODIPINE [Concomitant]
     Active Substance: AMLODIPINE BESYLATE
  6. AURYXIA [Concomitant]
     Active Substance: TETRAFERRIC TRICITRATE DECAHYDRATE
  7. ULORIC [Concomitant]
     Active Substance: FEBUXOSTAT
  8. CYMBALTA [Concomitant]
     Active Substance: DULOXETINE HYDROCHLORIDE
  9. VENTOLIN [Concomitant]
     Active Substance: ALBUTEROL SULFATE
  10. DELFLEX WITH DEXTROSE 4.25% LOW MAGNESIUM LOW CALCIUM [Suspect]
     Active Substance: CALCIUM CHLORIDE\DEXTROSE\MAGNESIUM CHLORIDE\SODIUM CHLORIDE\SODIUM LACTATE
     Indication: END STAGE RENAL DISEASE
     Dosage: FILL VOLUME 2500 ML, 5 EXCHANGES, LAST FILL 2000 ML (EXTRANEAL SOLUTION), NO DAYTIME EXCHANGE, DWELL
     Route: 033
  11. LOSARTAN. [Concomitant]
     Active Substance: LOSARTAN
  12. OZEMPIC [Concomitant]
     Active Substance: SEMAGLUTIDE
  13. DELFLEX WITH DEXTROSE 2.5% LOW MAGNESIUM LOW CALCIUM [Suspect]
     Active Substance: CALCIUM CHLORIDE\DEXTROSE\MAGNESIUM CHLORIDE\SODIUM CHLORIDE\SODIUM LACTATE
     Indication: END STAGE RENAL DISEASE
     Dosage: FILL VOLUME 2500 ML, 5 EXCHANGES, LAST FILL 2000 ML (EXTRANEAL SOLUTION), NO DAYTIME EXCHANGE, DWELL
     Route: 033
  14. DELFLEX WITH DEXTROSE 1.5% LOW MAGNESIUM LOW CALCIUM [Suspect]
     Active Substance: CALCIUM CHLORIDE\DEXTROSE\MAGNESIUM CHLORIDE\SODIUM CHLORIDE\SODIUM LACTATE
     Indication: END STAGE RENAL DISEASE
     Dosage: FILL VOLUME 2500 ML, 5 EXCHANGES, LAST FILL 2000 ML (EXTRANEAL SOLUTION), NO DAYTIME EXCHANGE, DWELL
     Route: 033
  15. GABAPENTIN. [Concomitant]
     Active Substance: GABAPENTIN
  16. HUMULIN NOS [Concomitant]
     Active Substance: INSULIN HUMAN
  17. MIRTAZAPINE. [Concomitant]
     Active Substance: MIRTAZAPINE
  18. PROSCAR [Concomitant]
     Active Substance: FINASTERIDE
  19. EXTRANEAL [Suspect]
     Active Substance: CALCIUM CHLORIDE\ICODEXTRIN\MAGNESIUM CHLORIDE\SODIUM CHLORIDE\SODIUM LACTATE
     Indication: END STAGE RENAL DISEASE
     Dosage: 1.5%, 2.5% AND 4.25% DELFLEX (020171), INTRAPERITONEAL (IP), WITH  FILL VOLUME 2500 ML, 5 EXCHANGES,
  20. FLOMAX [Concomitant]
     Active Substance: TAMSULOSIN HYDROCHLORIDE
  21. GLIPIZIDE. [Concomitant]
     Active Substance: GLIPIZIDE
  22. SINGULAIR [Concomitant]
     Active Substance: MONTELUKAST SODIUM

REACTIONS (1)
  - Peritonitis bacterial [Recovering/Resolving]
